FAERS Safety Report 5834371-6 (Version None)
Quarter: 2008Q3

REPORT INFORMATION
  Report Type: 
  Country: None (occurrence: None)
  Receive Date: 20080805
  Receipt Date: 20080724
  Transmission Date: 20090109
  Serious: Yes (Hospitalization)
  Sender: FDA-Public Use
  Company Number: FR-SANOFI-SYNTHELABO-A02200800771

PATIENT
  Sex: Female

DRUGS (10)
  1. LASIX [Suspect]
     Dosage: 40 MG
     Route: 048
  2. LASIX [Suspect]
     Dosage: 20 MG
     Route: 048
  3. PERINDOPRIL ERBUMINE [Suspect]
     Route: 048
  4. BISOPROLOL FUMARATE [Suspect]
     Route: 048
     Dates: end: 20071216
  5. EUPRESSYL [Suspect]
     Route: 048
     Dates: end: 20071216
  6. NICARDIPINE HCL [Suspect]
     Route: 048
     Dates: end: 20071216
  7. PREVISCAN [Suspect]
     Dosage: UNK
     Route: 048
     Dates: start: 20030301, end: 20071216
  8. STILNOX [Suspect]
     Indication: DRUG USE FOR UNKNOWN INDICATION
     Route: 048
     Dates: end: 20071216
  9. FORLAX [Concomitant]
     Route: 048
  10. MOPRAL [Concomitant]
     Route: 048
     Dates: end: 20071216

REACTIONS (3)
  - CEREBRAL HAEMATOMA [None]
  - DISORIENTATION [None]
  - FALL [None]
